FAERS Safety Report 24687010 (Version 1)
Quarter: 2024Q4

REPORT INFORMATION
  Report Type: Spontaneous
  Country: US (occurrence: None)
  Receive Date: 20241130
  Receipt Date: 20241130
  Transmission Date: 20250115
  Serious: No
  Sender: Public
  Company Number: None

PATIENT
  Age: 51 Year
  Sex: Female
  Weight: 65.25 kg

DRUGS (3)
  1. MONTELUKAST SODIUM [Suspect]
     Active Substance: MONTELUKAST\MONTELUKAST SODIUM
     Indication: Urticaria
     Dosage: OTHER QUANTITY : 1 TABLET(S);?FREQUENCY : DAILY;?
     Route: 048
     Dates: start: 20241127, end: 20241130
  2. MONTELUKAST SODIUM [Suspect]
     Active Substance: MONTELUKAST\MONTELUKAST SODIUM
     Indication: Dyspnoea
  3. INSULIN NOS [Concomitant]
     Active Substance: INSULIN NOS

REACTIONS (4)
  - Hallucination [None]
  - Nightmare [None]
  - Poor quality sleep [None]
  - Agitation [None]

NARRATIVE: CASE EVENT DATE: 20241129
